FAERS Safety Report 12100641 (Version 1)
Quarter: 2016Q1

REPORT INFORMATION
  Report Type: Report from Study
  Country: BR (occurrence: BR)
  Receive Date: 20160222
  Receipt Date: 20160222
  Transmission Date: 20160526
  Serious: Yes (Hospitalization, Congenital Anomaly, Other)
  Sender: FDA-Public Use
  Company Number: BR-MYLANLABS-2016M1006729

PATIENT

DRUGS (2)
  1. ACETYLSALICYLIC ACID [Suspect]
     Active Substance: ASPIRIN
     Indication: ARTERIAL THROMBOSIS
     Dosage: 100 MG FOR 3 DAYS
     Route: 064
  2. METHYLDOPA. [Suspect]
     Active Substance: METHYLDOPA
     Indication: ARTERIAL THROMBOSIS
     Dosage: 750 MG
     Route: 064

REACTIONS (6)
  - Foetal exposure during pregnancy [Recovered/Resolved]
  - Tricuspid valve incompetence [Recovered/Resolved]
  - Dilatation ventricular [Recovered/Resolved]
  - Persistent foetal circulation [Unknown]
  - Ductus arteriosus stenosis foetal [Recovered/Resolved]
  - Cyanosis neonatal [Unknown]
